FAERS Safety Report 23964566 (Version 1)
Quarter: 2024Q2

REPORT INFORMATION
  Report Type: Spontaneous
  Country: US (occurrence: US)
  Receive Date: 20240612
  Receipt Date: 20240612
  Transmission Date: 20240716
  Serious: Yes (Other)
  Sender: FDA-Public Use
  Company Number: US-STRIDES ARCOLAB LIMITED-2024SP006631

PATIENT
  Age: 57 Year
  Sex: Female

DRUGS (6)
  1. TOPIRAMATE [Suspect]
     Active Substance: TOPIRAMATE
     Indication: Nephrolithiasis
     Dosage: 25 MILLIGRAM
     Route: 065
     Dates: start: 202211
  2. TOPIRAMATE [Suspect]
     Active Substance: TOPIRAMATE
     Dosage: 50 MILLIGRAM (DOSE INCREASED)
     Route: 065
     Dates: start: 202212
  3. POTASSIUM CITRATE [Concomitant]
     Active Substance: POTASSIUM CITRATE
     Indication: Nephrolithiasis
     Dosage: 20 MILLIEQUIVALENT, BID
     Route: 065
     Dates: end: 2013
  4. SODIUM BICARBONATE [Concomitant]
     Active Substance: SODIUM BICARBONATE
     Indication: Nephrolithiasis
     Dosage: 1300 MILLIGRAM, BID
     Route: 065
     Dates: start: 2013
  5. SODIUM BICARBONATE [Concomitant]
     Active Substance: SODIUM BICARBONATE
     Dosage: UNK (DOSE INCREASED)
     Route: 065
  6. QSYMIA [Concomitant]
     Active Substance: PHENTERMINE HYDROCHLORIDE\TOPIRAMATE
     Indication: Nephrolithiasis
     Dosage: UNK
     Route: 065
     Dates: start: 20210620

REACTIONS (4)
  - Intentional product misuse [Unknown]
  - Treatment noncompliance [Unknown]
  - Brain fog [Unknown]
  - Off label use [Unknown]
